FAERS Safety Report 6132645-5 (Version None)
Quarter: 2009Q1

REPORT INFORMATION
  Report Type: 
  Country: None (occurrence: None)
  Receive Date: 20090324
  Receipt Date: 20090312
  Transmission Date: 20090719
  Serious: Yes (Hospitalization, Other)
  Sender: FDA-Public Use
  Company Number: 1000003606

PATIENT
  Sex: Female
  Weight: 2.912 kg

DRUGS (4)
  1. LEXAPRO [Suspect]
     Dosage: 10 MG (10 MG, 1 IN 1 D), TRANSPLACENTAL
     Route: 064
     Dates: start: 20080721, end: 20090116
  2. KLONOPIN [Concomitant]
  3. LORTAB [Concomitant]
  4. HEPATITIS B VACCINE(INJECTION) [Concomitant]

REACTIONS (11)
  - ANAEMIA NEONATAL [None]
  - AORTIC VALVE DISEASE [None]
  - BIOTIN DEFICIENCY [None]
  - BLOOD PRESSURE DECREASED [None]
  - CONVULSION NEONATAL [None]
  - HEART RATE INCREASED [None]
  - INFANTILE APNOEIC ATTACK [None]
  - MATERNAL DRUGS AFFECTING FOETUS [None]
  - MECONIUM IN AMNIOTIC FLUID [None]
  - NEONATAL RESPIRATORY DEPRESSION [None]
  - SEPSIS NEONATAL [None]
